FAERS Safety Report 18361946 (Version 1)
Quarter: 2020Q4

REPORT INFORMATION
  Report Type: Spontaneous
  Country: GB (occurrence: GB)
  Receive Date: 20201008
  Receipt Date: 20201008
  Transmission Date: 20210114
  Serious: Yes (Disabling)
  Sender: FDA-Public Use
  Company Number: GB-MYLANLABS-2020M1084685

PATIENT
  Age: 39 Year
  Sex: Male
  Weight: 148 kg

DRUGS (1)
  1. OMEPRAZOLE. [Suspect]
     Active Substance: OMEPRAZOLE
     Indication: GASTRITIS
     Dosage: 20 MILLIGRAM, QD
     Route: 048

REACTIONS (1)
  - Oedema [Recovered/Resolved with Sequelae]
